FAERS Safety Report 22274788 (Version 1)
Quarter: 2023Q2

REPORT INFORMATION
  Report Type: Spontaneous
  Country: US (occurrence: None)
  Receive Date: 20230501
  Receipt Date: 20230501
  Transmission Date: 20230721
  Serious: Yes (Death)
  Sender: FDA-Public Use
  Company Number: None

PATIENT
  Sex: Female

DRUGS (24)
  1. REPATHA [Suspect]
     Active Substance: EVOLOCUMAB
     Indication: Hyperlipidaemia
     Dosage: FREQUENCY : MONTHLY;?
     Route: 058
     Dates: start: 20221228
  2. ASPIRIN [Concomitant]
  3. AZELASTINE [Concomitant]
     Active Substance: AZELASTINE
  4. ORO [Concomitant]
  5. AZELASTINE SPR [Concomitant]
  6. ELIQUIS [Concomitant]
     Active Substance: APIXABAN
  7. FAMOTIDINE [Concomitant]
     Active Substance: FAMOTIDINE
  8. FERROUS SULFATE [Concomitant]
     Active Substance: FERROUS SULFATE
  9. FINASTERIDE [Concomitant]
     Active Substance: FINASTERIDE
  10. FLUOXETINE [Concomitant]
     Active Substance: FLUOXETINE HYDROCHLORIDE
  11. ISOSORBIDE DINITRATE [Concomitant]
     Active Substance: ISOSORBIDE DINITRATE
  12. LANTUS [Concomitant]
     Active Substance: INSULIN GLARGINE
  13. LEVALBUTEROL AER [Concomitant]
  14. LOMOTIL [Concomitant]
     Active Substance: ATROPINE SULFATE\DIPHENOXYLATE HYDROCHLORIDE
  15. NYSTATIN POW [Concomitant]
  16. OFEV [Concomitant]
  17. OZEMPIC [Concomitant]
     Active Substance: SEMAGLUTIDE
  18. SILODOSIN [Concomitant]
     Active Substance: SILODOSIN
  19. SODIUM BICAR [Concomitant]
  20. SOTALOL HCL [Concomitant]
  21. SYNTHROID [Concomitant]
     Active Substance: LEVOTHYROXINE SODIUM
  22. TYLENOL 8HR [Concomitant]
     Active Substance: ACETAMINOPHEN
  23. VITAMIN B12 [Concomitant]
     Active Substance: CYANOCOBALAMIN
  24. ZETIA [Concomitant]
     Active Substance: EZETIMIBE

REACTIONS (1)
  - Death [None]
